FAERS Safety Report 24371095 (Version 1)
Quarter: 2024Q3

REPORT INFORMATION
  Report Type: Other
  Country: US (occurrence: US)
  Receive Date: 20240927
  Receipt Date: 20240927
  Transmission Date: 20241017
  Serious: Yes (Other)
  Sender: ACI HEALTHCARE
  Company Number: US-ACI HealthCare Limited-2162129

PATIENT
  Age: 24 Year

DRUGS (2)
  1. GABAPENTIN [Suspect]
     Active Substance: GABAPENTIN
     Indication: Insomnia
  2. LORAZEPAM [Suspect]
     Active Substance: LORAZEPAM

REACTIONS (2)
  - Hallucination, visual [Recovered/Resolved]
  - Product use in unapproved indication [Unknown]
